FAERS Safety Report 5039930-9 (Version None)
Quarter: 2006Q2

REPORT INFORMATION
  Report Type: 
  Country: None (occurrence: None)
  Receive Date: 20060601
  Receipt Date: 20060123
  Transmission Date: 20061013
  Serious: No
  Sender: FDA-Public Use
  Company Number: 2005PV004800

PATIENT
  Age: 76 Year
  Sex: Female
  Weight: 80.2867 kg

DRUGS (9)
  1. BYETTA [Suspect]
     Indication: DIABETES MELLITUS NON-INSULIN-DEPENDENT
     Dosage: 5 MCG;BID;SC
     Route: 058
     Dates: start: 20051101, end: 20051201
  2. DILTIAZEM HCL [Concomitant]
  3. LISINOPRIL [Concomitant]
  4. NEXIUM [Concomitant]
  5. REGLAN [Concomitant]
  6. ACTOS /USA/ [Concomitant]
  7. LIPITOR [Concomitant]
  8. TAMOXIFEN [Concomitant]
  9. LEVAQUIN [Concomitant]

REACTIONS (3)
  - NASOPHARYNGITIS [None]
  - NAUSEA [None]
  - WEIGHT DECREASED [None]
